FAERS Safety Report 6477075-1 (Version None)
Quarter: 2009Q4

REPORT INFORMATION
  Report Type: 
  Country: None (occurrence: None)
  Receive Date: 20091119
  Receipt Date: 20091006
  Transmission Date: 20100525
  Serious: Yes (Other)
  Sender: FDA-Public Use
  Company Number: 2009SP029682

PATIENT
  Age: 26 Year
  Sex: Female
  Weight: 58 kg

DRUGS (2)
  1. IMPLANON [Suspect]
     Indication: CONTRACEPTION
     Dosage: 68 MG; SC
     Route: 058
     Dates: start: 20081212
  2. IMPLANON [Suspect]

REACTIONS (11)
  - ABORTION SPONTANEOUS [None]
  - ACNE [None]
  - ALOPECIA [None]
  - AMENORRHOEA [None]
  - ANAEMIA [None]
  - DECREASED APPETITE [None]
  - LIBIDO DECREASED [None]
  - PARAESTHESIA [None]
  - POLYMENORRHOEA [None]
  - PREGNANCY WITH IMPLANT CONTRACEPTIVE [None]
  - WEIGHT DECREASED [None]
